FAERS Safety Report 5144758-5 (Version None)
Quarter: 2006Q4

REPORT INFORMATION
  Report Type: 
  Country: None (occurrence: None)
  Receive Date: 20060905
  Receipt Date: 20060510
  Transmission Date: 20070319
  Serious: No
  Sender: FDA-Public Use
  Company Number: 34792

PATIENT
  Sex: Female

DRUGS (1)
  1. NEVANAC [Suspect]
     Indication: MACULAR OEDEMA
     Dates: start: 20060509

REACTIONS (2)
  - EYE IRRITATION [None]
  - EYELID OEDEMA [None]
